FAERS Safety Report 7819569-X (Version None)
Quarter: 2011Q4

REPORT INFORMATION
  Report Type: 
  Country: None (occurrence: None)
  Receive Date: 20111018
  Receipt Date: 20111004
  Transmission Date: 20120403
  Serious: Yes (Other)
  Sender: FDA-Public Use
  Company Number: IT-MYLANLABS-2011S1021020

PATIENT
  Age: 71 Year
  Sex: Male

DRUGS (6)
  1. CYTARABINE [Suspect]
     Dosage: HIGH-DOSE
     Route: 065
     Dates: end: 20030101
  2. METHOTREXATE [Concomitant]
     Indication: COLITIS ULCERATIVE
     Route: 065
  3. MERCAPTOPURINE [Suspect]
     Indication: ACUTE MYELOID LEUKAEMIA
     Route: 065
     Dates: end: 20040901
  4. CYTARABINE [Suspect]
     Indication: ACUTE MYELOID LEUKAEMIA
     Route: 065
  5. IDARUBICIN HCL [Suspect]
     Indication: ACUTE MYELOID LEUKAEMIA
     Route: 065
  6. ETOPOSIDE [Suspect]
     Indication: ACUTE MYELOID LEUKAEMIA
     Route: 065

REACTIONS (2)
  - PRURITUS [None]
  - POLYCYTHAEMIA VERA [None]
